FAERS Safety Report 5284004-5 (Version None)
Quarter: 2007Q1

REPORT INFORMATION
  Report Type: 
  Country: None (occurrence: None)
  Receive Date: 20070327
  Receipt Date: 20070312
  Transmission Date: 20070707
  Serious: Yes (Other)
  Sender: FDA-Public Use
  Company Number: PAR_1428_2007

PATIENT
  Age: 48 Year
  Sex: Female
  Weight: 52.1637 kg

DRUGS (11)
  1. CLONAZEPAM [Suspect]
     Indication: SOMNOLENCE
     Dosage: 2 MG QHS PO
     Route: 048
     Dates: start: 20050501, end: 20050901
  2. CLONAZEPAM [Suspect]
     Indication: SOMNOLENCE
     Dosage: 1 MG QHS PO
     Route: 048
     Dates: start: 20050901
  3. CLONAZEPAM [Suspect]
     Indication: SOMNOLENCE
     Dosage: 0.5 MG QHS PO
     Route: 048
     Dates: start: 20060801, end: 20060901
  4. DIAZEPAM [Suspect]
     Indication: DRUG DEPENDENCE
     Dosage: 10 MG QHS PO
     Route: 048
     Dates: start: 20060801, end: 20060901
  5. DIAZEPAM [Suspect]
     Indication: SOMNOLENCE
     Dosage: 10 MG QHS PO
     Route: 048
     Dates: start: 20060801, end: 20060901
  6. DIAZEPAM [Suspect]
     Indication: DRUG DEPENDENCE
     Dosage: 6 MG QHS PO
     Route: 048
     Dates: start: 20060401, end: 20060501
  7. DIAZEPAM [Suspect]
     Indication: SOMNOLENCE
     Dosage: 6 MG QHS PO
     Route: 048
     Dates: start: 20060401, end: 20060501
  8. DIAZEPAM [Suspect]
     Indication: DRUG DEPENDENCE
     Dosage: 6.5 MG QHS PO
     Route: 048
     Dates: end: 20060401
  9. DIAZEPAM [Suspect]
     Indication: SOMNOLENCE
     Dosage: 6.5 MG QHS PO
     Route: 048
     Dates: end: 20060401
  10. DIAZEPAM [Suspect]
     Indication: DRUG DEPENDENCE
     Dosage: 10 MG QHS PO
     Route: 048
  11. DIAZEPAM [Suspect]
     Indication: SOMNOLENCE
     Dosage: 10 MG QHS PO
     Route: 048

REACTIONS (24)
  - ACTIVITIES OF DAILY LIVING IMPAIRED [None]
  - ANOREXIA [None]
  - ANXIETY [None]
  - BURNING SENSATION [None]
  - DEPRESSION [None]
  - DISTURBANCE IN ATTENTION [None]
  - DRUG DEPENDENCE [None]
  - DRUG WITHDRAWAL SYNDROME [None]
  - FEELING ABNORMAL [None]
  - HYPOAESTHESIA FACIAL [None]
  - IMPAIRED WORK ABILITY [None]
  - INSOMNIA [None]
  - INTERVERTEBRAL DISC PROTRUSION [None]
  - MUSCLE SPASMS [None]
  - MYOCLONUS [None]
  - NEUROLOGICAL SYMPTOM [None]
  - PARAESTHESIA [None]
  - SEDATION [None]
  - SUICIDAL IDEATION [None]
  - TINNITUS [None]
  - TREMOR [None]
  - TRIGEMINAL NEURALGIA [None]
  - VISION BLURRED [None]
  - WEIGHT DECREASED [None]
